FAERS Safety Report 11277152 (Version 1)
Quarter: 2015Q3

REPORT INFORMATION
  Report Type: Spontaneous
  Country: SE (occurrence: SE)
  Receive Date: 20150716
  Receipt Date: 20150716
  Transmission Date: 20151125
  Serious: Yes (Other)
  Sender: FDA-Public Use
  Company Number: SE-TEVA-578150ISR

PATIENT
  Age: 59 Year
  Sex: Male

DRUGS (1)
  1. LAMOTRIGINE 150 ORAL [Suspect]
     Active Substance: LAMOTRIGINE
     Route: 048

REACTIONS (2)
  - Food interaction [Recovered/Resolved]
  - Epilepsy [Recovered/Resolved]
